FAERS Safety Report 9181647 (Version 1)
Quarter: 2013Q1

REPORT INFORMATION
  Report Type: Spontaneous
  Country: US (occurrence: US)
  Receive Date: 20130322
  Receipt Date: 20130322
  Transmission Date: 20140127
  Serious: Yes (Other)
  Sender: FDA-Public Use
  Company Number: US-JNJFOC-2006079584

PATIENT
  Sex: Female
  Weight: 65.77 kg

DRUGS (5)
  1. MOTRIN [Suspect]
     Indication: PAIN
     Dosage: DAILY DOSE QTY: 1600 MG
     Route: 065
  2. MOTRIN [Suspect]
     Indication: PAIN
     Dosage: DAILY DOSE QTY: 1600 MG
     Route: 065
  3. GLUCOTROL [Suspect]
     Indication: DIABETES MELLITUS
     Route: 065
  4. STARLIX [Suspect]
     Indication: DIABETES MELLITUS
     Route: 065
     Dates: start: 2005, end: 2005
  5. ACTONEL [Concomitant]
     Route: 065

REACTIONS (9)
  - Diabetes mellitus [Recovering/Resolving]
  - Nervousness [Recovered/Resolved]
  - Feeling jittery [Recovered/Resolved]
  - Herpes zoster [Recovering/Resolving]
  - Hyperhidrosis [Recovered/Resolved]
  - Feeling hot [Recovered/Resolved]
  - Dyspnoea [Recovered/Resolved]
  - Stress [Not Recovered/Not Resolved]
  - Formication [Unknown]
